FAERS Safety Report 4415240-5 (Version None)
Quarter: 2004Q3

REPORT INFORMATION
  Report Type: 
  Country: None (occurrence: None)
  Receive Date: 20040804
  Receipt Date: 20040726
  Transmission Date: 20050211
  Serious: Yes (Hospitalization)
  Sender: FDA-Public Use
  Company Number: JP-GLAXOSMITHKLINE-B0341021A

PATIENT
  Sex: Female

DRUGS (5)
  1. PAXIL [Suspect]
     Dates: start: 20040518, end: 20040712
  2. MEILAX [Concomitant]
  3. LENDORM [Concomitant]
  4. MELLARIL [Concomitant]
  5. BENZALIN [Concomitant]

REACTIONS (3)
  - DRUG EXPOSURE DURING PREGNANCY [None]
  - FEEDING PROBLEM IN NEWBORN [None]
  - HYPOTHERMIA [None]
